FAERS Safety Report 25395682 (Version 1)
Quarter: 2025Q2

REPORT INFORMATION
  Report Type: Report from Study
  Country: US (occurrence: US)
  Receive Date: 20250604
  Receipt Date: 20250604
  Transmission Date: 20250717
  Serious: No
  Sender: ACADIA PHARMACEUTICALS
  Company Number: US-ACADIA PHARMACEUTICALS INC.-ACA-2025-PIM-006494

PATIENT
  Age: 78 Year
  Sex: Male

DRUGS (12)
  1. NUPLAZID [Suspect]
     Active Substance: PIMAVANSERIN TARTRATE
     Indication: Parkinson^s disease
     Dosage: 34 MILLIGRAM, DAILY
     Route: 048
     Dates: start: 20241024
  2. MELATONIN [Concomitant]
     Active Substance: MELATONIN
  3. ADULT MULTIVITAMIN [Concomitant]
  4. QUETIAPINE [Concomitant]
     Active Substance: QUETIAPINE
     Dates: start: 20250521
  5. ROSUVASTATIN [Concomitant]
     Active Substance: ROSUVASTATIN
  6. RIVASTIGMINE [Concomitant]
     Active Substance: RIVASTIGMINE
  7. BUSPIRONE [Concomitant]
     Active Substance: BUSPIRONE HYDROCHLORIDE
  8. FAMOTIDINE [Concomitant]
     Active Substance: FAMOTIDINE
  9. DULOXETINE [Concomitant]
     Active Substance: DULOXETINE
  10. CARBIDOPA\LEVODOPA [Concomitant]
     Active Substance: CARBIDOPA\LEVODOPA
  11. LACTULOSE [Concomitant]
     Active Substance: LACTULOSE
  12. ACETAMINOPHEN\HYDROCODONE [Concomitant]
     Active Substance: ACETAMINOPHEN\HYDROCODONE

REACTIONS (1)
  - Constipation [Not Recovered/Not Resolved]

NARRATIVE: CASE EVENT DATE: 20250501
